FAERS Safety Report 4491429-4 (Version None)
Quarter: 2004Q4

REPORT INFORMATION
  Report Type: 
  Country: None (occurrence: None)
  Receive Date: 20041103
  Receipt Date: 20041027
  Transmission Date: 20050328
  Serious: Yes (Hospitalization)
  Sender: FDA-Public Use
  Company Number: PHRM2004FR03208

PATIENT
  Age: 33 Year
  Sex: Female

DRUGS (10)
  1. SYNTOCINON [Suspect]
     Dosage: 6 ML, ONCE
     Route: 042
     Dates: start: 20040811, end: 20040811
  2. DROLEPTAN [Suspect]
     Dosage: 1 DF/DAY
     Route: 042
     Dates: start: 20040811, end: 20040811
  3. MORPHINE HYDROCHLORIDE [Suspect]
     Indication: SPINAL ANAESTHESIA
     Dosage: 100 UG, ONCE/SINGLE
     Route: 037
     Dates: start: 20040811, end: 20040811
  4. ZOPHREN [Suspect]
     Dosage: 1 DF/DAY
     Route: 042
     Dates: start: 20040811, end: 20040811
  5. EPHEDRINE HYDROCHLORIDE [Suspect]
     Dosage: 2 DF/DAY
     Route: 042
     Dates: start: 20040811, end: 20040811
  6. MARCAINE [Suspect]
     Indication: SPINAL ANAESTHESIA
     Dosage: 10 MG, ONCE/SINGLE
     Route: 037
     Dates: start: 20040811, end: 20040811
  7. LACTATED RINGER'S [Concomitant]
     Indication: SPINAL ANAESTHESIA
     Dosage: 2.5 L, ONCE/SINGLE
     Dates: start: 20040811, end: 20040811
  8. LEXOMIL [Concomitant]
     Route: 048
  9. SEROPRAM [Concomitant]
  10. PROZAC [Concomitant]

REACTIONS (4)
  - CONFUSIONAL STATE [None]
  - HYPERHIDROSIS [None]
  - HYPOTHERMIA [None]
  - URINE AMPHETAMINE POSITIVE [None]
